FAERS Safety Report 9912221 (Version 1)
Quarter: 2014Q1

REPORT INFORMATION
  Report Type: Spontaneous
  Country: US (occurrence: US)
  Receive Date: 20140220
  Receipt Date: 20140220
  Transmission Date: 20141002
  Serious: No
  Sender: FDA-Public Use
  Company Number: US-SANOFI-AVENTIS-2013SA025072

PATIENT
  Age: 50 Year
  Sex: Female

DRUGS (1)
  1. AUVI-Q [Suspect]
     Dosage: DOSE:0.3 MILLIGRAM(S)/MILLILITRE
     Route: 065
     Dates: start: 20130306, end: 20130306

REACTIONS (8)
  - Sensation of heaviness [Unknown]
  - Drug administration error [Unknown]
  - Myalgia [Unknown]
  - Grip strength decreased [Unknown]
  - Pulse pressure increased [Unknown]
  - Psychomotor hyperactivity [Not Recovered/Not Resolved]
  - Insomnia [Unknown]
  - Injection site induration [Unknown]
